FAERS Safety Report 9989093 (Version 2)
Quarter: 2014Q1

REPORT INFORMATION
  Report Type: Report from Study
  Country: PR (occurrence: PR)
  Receive Date: 20140310
  Receipt Date: 20140310
  Transmission Date: 20141002
  Serious: Yes (Hospitalization)
  Sender: FDA-Public Use
  Company Number: PR-ABBVIE-13P-131-1120759-00

PATIENT
  Age: 53 Year
  Sex: Female
  Weight: 134.38 kg

DRUGS (16)
  1. HUMIRA [Suspect]
     Indication: PSORIATIC ARTHROPATHY
     Route: 058
     Dates: start: 20130601
  2. SYNTHROID [Concomitant]
     Indication: HYPOTHYROIDISM
     Route: 048
  3. PREVACID [Concomitant]
     Indication: GASTRITIS
     Route: 048
  4. CYMBALTA [Concomitant]
     Indication: MAJOR DEPRESSION
     Route: 048
  5. ATIVAN [Concomitant]
     Indication: MAJOR DEPRESSION
     Route: 048
  6. ABILIFY [Concomitant]
     Indication: PSYCHOTIC DISORDER
     Route: 048
  7. TRENTAL [Concomitant]
     Indication: CARDIOVASCULAR DISORDER
     Route: 048
  8. METHOTREXATE [Concomitant]
     Indication: PSORIATIC ARTHROPATHY
     Route: 048
  9. VITAMIN D2 [Concomitant]
     Indication: VITAMIN SUPPLEMENTATION
     Route: 048
  10. FOLIC ACID [Concomitant]
     Indication: VITAMIN SUPPLEMENTATION
     Route: 048
  11. NEURONTIN [Concomitant]
     Indication: PAIN
     Route: 048
  12. ATIVAN [Concomitant]
     Indication: MAJOR DEPRESSION
     Dosage: AT NIGHT
     Route: 048
  13. RESTORIL [Concomitant]
     Indication: MAJOR DEPRESSION
     Dosage: AT NIGHT
     Route: 048
  14. TRAZODONE [Concomitant]
     Indication: MAJOR DEPRESSION
     Dosage: AT NIGHT
     Route: 048
  15. BONIVA [Concomitant]
     Indication: OSTEOPENIA
     Route: 048
  16. PERCOCET [Concomitant]
     Indication: PAIN
     Route: 048

REACTIONS (1)
  - Diverticulitis [Recovered/Resolved]
